FAERS Safety Report 8421726-9 (Version None)
Quarter: 2012Q2

REPORT INFORMATION
  Report Type: 
  Country: None (occurrence: None)
  Receive Date: 20120601
  Receipt Date: 20120521
  Transmission Date: 20120825
  Serious: Yes (Hospitalization, Disabling)
  Sender: FDA-Public Use
  Company Number: 2012MA006634

PATIENT
  Age: 52 Year
  Sex: Male

DRUGS (3)
  1. CARBOPLATIN [Suspect]
     Indication: CHEMOTHERAPY
     Dosage: IV
     Route: 042
     Dates: start: 20110324, end: 20110713
  2. ALIMTA [Suspect]
     Indication: CHEMOTHERAPY
     Dosage: 500 MG/M**2
     Dates: start: 20110324, end: 20110713
  3. AVASTIN [Suspect]
     Indication: CHEMOTHERAPY
     Dosage: 7.5 MG/KG
     Dates: start: 20110324, end: 20110921

REACTIONS (6)
  - CARDIOMYOPATHY [None]
  - METASTATIC BRONCHIAL CARCINOMA [None]
  - NEOPLASM PROGRESSION [None]
  - DYSPNOEA [None]
  - CARDIAC FAILURE CONGESTIVE [None]
  - RADIATION PNEUMONITIS [None]
